FAERS Safety Report 7625485-9 (Version None)
Quarter: 2011Q3

REPORT INFORMATION
  Report Type: 
  Country: None (occurrence: None)
  Receive Date: 20110701
  Receipt Date: 20100622
  Transmission Date: 20111222
  Serious: Yes (Hospitalization)
  Sender: FDA-Public Use
  Company Number: 7008972

PATIENT
  Age: 28 Year
  Sex: Female
  Weight: 120 kg

DRUGS (6)
  1. REBIF [Suspect]
     Indication: MULTIPLE SCLEROSIS
     Dosage: 44 MCG, 3 IN 1 WK, SUBCUTANEOUS
     Route: 058
     Dates: start: 20091116
  2. AMBIEN [Concomitant]
  3. UNSPECIFIED MEDICATION (ALL OTHER THERAPEUTICS PRODUCTS) [Concomitant]
  4. LEXAPRO [Concomitant]
  5. COUMADIN [Concomitant]
  6. NEXIUM [Concomitant]

REACTIONS (6)
  - SYRINGOMYELIA [None]
  - PYREXIA [None]
  - HYPOAESTHESIA [None]
  - CHILLS [None]
  - MULTIPLE SCLEROSIS RELAPSE [None]
  - HEADACHE [None]
